FAERS Safety Report 9204572 (Version 2)
Quarter: 2013Q4

REPORT INFORMATION
  Report Type: Spontaneous
  Country: US (occurrence: US)
  Receive Date: 20130402
  Receipt Date: 20131023
  Transmission Date: 20140711
  Serious: Yes (Hospitalization)
  Sender: FDA-Public Use
  Company Number: US-BAYER-2013-039145

PATIENT
  Age: 33 Year
  Sex: Female
  Weight: 113 kg

DRUGS (3)
  1. MIRENA [Suspect]
     Indication: CONTRACEPTION
     Dosage: 24 MCG/24HR, CONT
     Route: 015
     Dates: start: 200608, end: 20110322
  2. PRENATAL VITAMINS [Concomitant]
     Route: 048
  3. FERROUS SULPHATE [Concomitant]

REACTIONS (11)
  - Uterine perforation [None]
  - Genital haemorrhage [None]
  - Injury [None]
  - Post procedural discomfort [None]
  - Dyspareunia [None]
  - Pain [None]
  - Device dislocation [None]
  - Depression [None]
  - Emotional distress [None]
  - Infertility female [None]
  - Bedridden [None]
